FAERS Safety Report 9733343 (Version 4)
Quarter: 2014Q2

REPORT INFORMATION
  Report Type: Report from Study
  Country: CA (occurrence: CA)
  Receive Date: 20131205
  Receipt Date: 20140602
  Transmission Date: 20141212
  Serious: Yes (Hospitalization, Other)
  Sender: FDA-Public Use
  Company Number: CA-ABBVIE-12P-028-1013880-00

PATIENT
  Age: 27 Year
  Sex: Male
  Weight: 83.08 kg

DRUGS (5)
  1. HUMIRA [Suspect]
     Indication: CROHN^S DISEASE
     Route: 058
     Dates: start: 20121024, end: 20121115
  2. HUMIRA [Suspect]
     Route: 058
     Dates: start: 20131123
  3. HUMIRA [Suspect]
     Route: 058
     Dates: start: 201405
  4. PREDNISONE [Concomitant]
     Indication: PRODUCT USED FOR UNKNOWN INDICATION
  5. IMURAN [Concomitant]
     Indication: PRODUCT USED FOR UNKNOWN INDICATION
     Route: 048

REACTIONS (9)
  - Large intestinal stenosis [Recovered/Resolved]
  - Fibrosing colonopathy [Recovered/Resolved]
  - Fistula [Recovered/Resolved]
  - Inflammation [Recovered/Resolved]
  - Gastrointestinal disorder [Recovered/Resolved]
  - Fistula [Recovered/Resolved]
  - Inflammation [Recovered/Resolved]
  - Gastrointestinal disorder [Recovered/Resolved]
  - Inflammation [Not Recovered/Not Resolved]
